FAERS Safety Report 4789624-X (Version None)
Quarter: 2005Q4

REPORT INFORMATION
  Report Type: 
  Country: None (occurrence: None)
  Receive Date: 20051006
  Receipt Date: 20050926
  Transmission Date: 20060501
  Serious: Yes (Hospitalization, Other)
  Sender: FDA-Public Use
  Company Number: PHBS2005BR14333

PATIENT
  Age: 59 Year
  Sex: Male
  Weight: 113 kg

DRUGS (2)
  1. ANTIBIOTICS [Concomitant]
     Dosage: UNK, BID
     Dates: start: 20050811, end: 20050818
  2. VOLTAREN [Suspect]
     Indication: PROCEDURAL PAIN
     Dosage: 75 MG, ONCE/SINGLE
     Route: 030
     Dates: start: 20050813, end: 20050813

REACTIONS (9)
  - ACTIVITIES OF DAILY LIVING IMPAIRED [None]
  - BLOOD PRESSURE DECREASED [None]
  - FEELING ABNORMAL [None]
  - INJECTION SITE DESQUAMATION [None]
  - INJECTION SITE DISCOLOURATION [None]
  - INJECTION SITE IRRITATION [None]
  - INJECTION SITE NECROSIS [None]
  - PAIN [None]
  - WOUND [None]
